FAERS Safety Report 4655571-7 (Version None)
Quarter: 2005Q2

REPORT INFORMATION
  Report Type: 
  Country: None (occurrence: None)
  Receive Date: 20050505
  Receipt Date: 20050422
  Transmission Date: 20051028
  Serious: Yes (Hospitalization)
  Sender: FDA-Public Use
  Company Number: 2005064070

PATIENT
  Age: 71 Year
  Sex: Female
  Weight: 131.5431 kg

DRUGS (1)
  1. BEXTRA [Suspect]
     Indication: OSTEOARTHRITIS
     Dosage: 10 MG (10 MG, 1 IN 1 D), ORAL
     Route: 048
     Dates: end: 20050401

REACTIONS (6)
  - ATRIAL FIBRILLATION [None]
  - BREAST CANCER RECURRENT [None]
  - DRUG INEFFECTIVE [None]
  - PRURITUS [None]
  - SKIN DISCOLOURATION [None]
  - SKIN DISORDER [None]
